FAERS Safety Report 6283927-8 (Version None)
Quarter: 2009Q3

REPORT INFORMATION
  Report Type: 
  Country: None (occurrence: None)
  Receive Date: 20090722
  Receipt Date: 20090722
  Transmission Date: 20100115
  Serious: No
  Sender: FDA-Public Use
  Company Number: None

PATIENT
  Age: 30 Year
  Sex: Female
  Weight: 61.2356 kg

DRUGS (2)
  1. CYCLOBENZAPRINE [Suspect]
     Indication: NECK PAIN
     Dosage: 10-MG 1/NIGHT PO SEVERAL HOURS
     Route: 048
     Dates: start: 20090716, end: 20090716
  2. CYCLOBENZAPRINE [Suspect]
     Indication: WHIPLASH INJURY
     Dosage: 10-MG 1/NIGHT PO SEVERAL HOURS
     Route: 048
     Dates: start: 20090716, end: 20090716

REACTIONS (2)
  - HALLUCINATION [None]
  - PRODUCT LABEL ISSUE [None]
